FAERS Safety Report 10985111 (Version 1)
Quarter: 2015Q2

REPORT INFORMATION
  Report Type: Spontaneous
  Country: US (occurrence: None)
  Receive Date: 20150403
  Receipt Date: 20150403
  Transmission Date: 20150821
  Serious: Yes (Life-Threatening)
  Sender: FDA-Public Use
  Company Number: None

PATIENT
  Age: 74 Year
  Sex: Male
  Weight: 106 kg

DRUGS (3)
  1. HEPARIN [Concomitant]
     Active Substance: HEPARIN SODIUM
  2. LIDOCAINE 2% [Concomitant]
     Active Substance: LIDOCAINE
  3. OMNIPAQUE [Suspect]
     Active Substance: IOHEXOL
     Indication: ANGIOGRAM

REACTIONS (5)
  - Hyperhidrosis [None]
  - Lethargy [None]
  - Erythema [None]
  - Heart rate increased [None]
  - Hypotension [None]

NARRATIVE: CASE EVENT DATE: 20150401
